FAERS Safety Report 20408326 (Version 1)
Quarter: 2022Q1

REPORT INFORMATION
  Report Type: Report from Study
  Country: US (occurrence: None)
  Receive Date: 20220201
  Receipt Date: 20220201
  Transmission Date: 20220424
  Serious: Yes (Death, Other)
  Sender: FDA-Public Use
  Company Number: US-ROCHE-3014466

PATIENT
  Age: 63 Year
  Sex: Male

DRUGS (2)
  1. OBINUTUZUMAB [Suspect]
     Active Substance: OBINUTUZUMAB
     Indication: Chronic lymphocytic leukaemia
     Dosage: CYCLE 1 DAY 1 (14.8 ML)
     Route: 042
     Dates: start: 20190403
  2. IBRUTINIB [Suspect]
     Active Substance: IBRUTINIB
     Indication: Chronic lymphocytic leukaemia
     Dosage: CYCLE = 28 DAYS IBRUTINIB (PCI-32765) : 420 MG
     Route: 065
     Dates: start: 20190403

REACTIONS (2)
  - Death [Fatal]
  - Infusion related reaction [Unknown]

NARRATIVE: CASE EVENT DATE: 20190403
